FAERS Safety Report 10267717 (Version 1)
Quarter: 2014Q2

REPORT INFORMATION
  Report Type: Spontaneous
  Country: US (occurrence: US)
  Receive Date: 20140630
  Receipt Date: 20140630
  Transmission Date: 20141212
  Serious: No
  Sender: FDA-Public Use
  Company Number: US-BAYER-2014-092016

PATIENT
  Age: 79 Year
  Sex: Male

DRUGS (1)
  1. LEVITRA [Suspect]
     Indication: ERECTILE DYSFUNCTION
     Dosage: 10 MG, BIW

REACTIONS (3)
  - Therapeutic response increased [Unknown]
  - Drug ineffective [Unknown]
  - Drug ineffective [None]
